FAERS Safety Report 6194904-X (Version None)
Quarter: 2009Q2

REPORT INFORMATION
  Report Type: 
  Country: None (occurrence: None)
  Receive Date: 20090515
  Receipt Date: 20090515
  Transmission Date: 20091009
  Serious: Yes (Hospitalization)
  Sender: FDA-Public Use
  Company Number: None

PATIENT
  Sex: Male

DRUGS (11)
  1. KEPPRA [Suspect]
     Indication: CONVULSION
     Dosage: 500 MG BID PO
     Route: 048
  2. LORAZEPAM [Suspect]
     Indication: ANXIETY
     Dosage: 0.5 MG Q6H PRN
  3. SENNALAX [Concomitant]
  4. PRILOSEC [Concomitant]
  5. THERAPLUS LIQ [Concomitant]
  6. ZOCOR [Concomitant]
  7. ALBUTEROL [Concomitant]
  8. PLAVIX [Concomitant]
  9. ZOLPIDEM [Concomitant]
  10. ZANAFLEX [Concomitant]
  11. LEXAPRO [Concomitant]

REACTIONS (1)
  - MENTAL STATUS CHANGES [None]
